FAERS Safety Report 9014084 (Version 2)
Quarter: 2013Q1

REPORT INFORMATION
  Report Type: Report from Study
  Country: NL (occurrence: NL)
  Receive Date: 20130115
  Receipt Date: 20130226
  Transmission Date: 20140127
  Serious: Yes (Hospitalization)
  Sender: FDA-Public Use
  Company Number: NL-ROCHE-1176626

PATIENT
  Age: 75 Year
  Sex: Female

DRUGS (14)
  1. BEVACIZUMAB [Suspect]
     Indication: COLORECTAL CANCER
     Dosage: DATE OF LAST CYCLE 15/JUL/2011
     Route: 042
     Dates: start: 20101014
  2. BEVACIZUMAB [Suspect]
     Dosage: DATE OF LAST CYCLE 04/MAR/2012
     Route: 042
     Dates: start: 20100528
  3. CAPECITABINE [Suspect]
     Indication: COLORECTAL CANCER
     Dosage: DATE OF LAST CYCLE 15/JUL/2011
     Route: 048
     Dates: start: 20101014
  4. CAPECITABINE [Suspect]
     Route: 048
  5. OXALIPLATIN [Suspect]
     Indication: COLORECTAL CANCER
     Route: 042
     Dates: start: 20100520
  6. PAROXETINE [Concomitant]
     Route: 065
  7. DUROGESIC [Concomitant]
     Route: 065
  8. DUROGESIC [Concomitant]
     Route: 065
  9. LYRICA [Concomitant]
     Route: 065
  10. APROVEL [Concomitant]
     Route: 065
  11. LACTULOSE [Concomitant]
  12. FENTANYL [Concomitant]
     Route: 065
  13. PANTOZOL [Concomitant]
     Route: 065
  14. ORAMORPH [Concomitant]
     Dosage: 1-6DD
     Route: 065

REACTIONS (4)
  - Toxicity to various agents [Unknown]
  - Pneumonia [Unknown]
  - Somnolence [Unknown]
  - Pyrexia [Unknown]
